FAERS Safety Report 25815526 (Version 1)
Quarter: 2025Q3

REPORT INFORMATION
  Report Type: Spontaneous
  Country: US (occurrence: US)
  Receive Date: 20250918
  Receipt Date: 20250918
  Transmission Date: 20251021
  Serious: Yes (Other)
  Sender: AMGEN
  Company Number: US-AMGEN-USASP2025181388

PATIENT
  Sex: Female

DRUGS (24)
  1. PROLIA [Suspect]
     Active Substance: DENOSUMAB
     Indication: Product used for unknown indication
     Route: 058
  2. PREDNISONE [Suspect]
     Active Substance: PREDNISONE
     Indication: Product used for unknown indication
     Route: 065
  3. AZITHROMYCIN [Concomitant]
     Active Substance: AZITHROMYCIN
     Route: 065
  4. AZITHROMYCIN [Concomitant]
     Active Substance: AZITHROMYCIN
     Route: 065
  5. BUPROPION HYDROCHLORIDE [Concomitant]
     Active Substance: BUPROPION HYDROCHLORIDE
  6. ERGOCALCIFEROL [Concomitant]
     Active Substance: ERGOCALCIFEROL
  7. VITAMIN D3 [Concomitant]
     Active Substance: CHOLECALCIFEROL
  8. CIPROFLOXACIN AND DEXAMETHASONE [Concomitant]
     Active Substance: CIPROFLOXACIN HYDROCHLORIDE\DEXAMETHASONE
  9. CLONAZEPAM [Concomitant]
     Active Substance: CLONAZEPAM
  10. DOXYCYCLINE HYCLATE [Concomitant]
     Active Substance: DOXYCYCLINE HYCLATE
     Route: 065
  11. ESTRADIOL [Concomitant]
     Active Substance: ESTRADIOL
  12. FAMOTIDINE [Concomitant]
     Active Substance: FAMOTIDINE
     Route: 067
  13. FLUTICASONE [Concomitant]
     Active Substance: FLUTICASONE
     Route: 045
  14. TRELEGY ELLIPTA [Concomitant]
     Active Substance: FLUTICASONE FUROATE\UMECLIDINIUM BROMIDE\VILANTEROL TRIFENATATE
     Route: 065
  15. HYDROXYCHLOROQUINE [Concomitant]
     Active Substance: HYDROXYCHLOROQUINE
  16. IPRATROPIUM BROMIDE [Concomitant]
     Active Substance: IPRATROPIUM BROMIDE
  17. LINZESS [Concomitant]
     Active Substance: LINACLOTIDE
     Route: 065
  18. MECLIZINE [Concomitant]
     Active Substance: MECLIZINE HYDROCHLORIDE
     Route: 065
  19. MONTELUKAST [Concomitant]
     Active Substance: MONTELUKAST
  20. OFLOXACIN [Concomitant]
     Active Substance: OFLOXACIN
  21. PANTOPRAZOLE [Concomitant]
     Active Substance: PANTOPRAZOLE
     Route: 065
  22. POTASSIUM CITRATE [Concomitant]
     Active Substance: POTASSIUM CITRATE
  23. TAMSULOSIN [Concomitant]
     Active Substance: TAMSULOSIN
  24. VITAMIN E [Concomitant]
     Active Substance: .ALPHA.-TOCOPHEROL
     Route: 065

REACTIONS (21)
  - Arteriosclerosis coronary artery [Unknown]
  - Syncope [Unknown]
  - Loss of consciousness [Unknown]
  - Gastrooesophageal reflux disease [Unknown]
  - Rhinorrhoea [Unknown]
  - Cough [Unknown]
  - Nasal dryness [Unknown]
  - Illness [Unknown]
  - Sleep apnoea syndrome [Unknown]
  - Paranasal sinus discomfort [Unknown]
  - Paranasal sinus hypersecretion [Unknown]
  - Urinary tract infection [Unknown]
  - Epistaxis [Unknown]
  - COVID-19 [Unknown]
  - Asthma [Not Recovered/Not Resolved]
  - Chest pain [Unknown]
  - Dysphonia [Unknown]
  - Feeling hot [Unknown]
  - Cold sweat [Unknown]
  - Palpitations [Unknown]
  - Bloody discharge [Unknown]

NARRATIVE: CASE EVENT DATE: 20210101
